FAERS Safety Report 6925827-3 (Version None)
Quarter: 2010Q3

REPORT INFORMATION
  Report Type: 
  Country: None (occurrence: None)
  Receive Date: 20100816
  Receipt Date: 20100802
  Transmission Date: 20110219
  Serious: Yes (Other)
  Sender: FDA-Public Use
  Company Number: DE-ELI_LILLY_AND_COMPANY-DE201005000397

PATIENT
  Sex: Female
  Weight: 92 kg

DRUGS (9)
  1. BYETTA [Suspect]
     Indication: TYPE 2 DIABETES MELLITUS
     Dosage: 10 UG, 2/D
     Route: 058
     Dates: start: 20100224
  2. METFORMIN [Concomitant]
     Dosage: 1000 MG, 2/D
     Route: 065
  3. XIPAMID [Concomitant]
     Dosage: 40 MG, UNKNOWN
     Route: 065
  4. METO-TABLINEN [Concomitant]
     Indication: TACHYCARDIA
     Dosage: 1/2, UNKNOWN
     Route: 065
  5. VIANI [Concomitant]
     Dosage: 50/250, 50/100 UG, UNKNOWN
     Route: 065
  6. SPIRO-D-TABLINEN [Concomitant]
     Indication: OEDEMA
  7. OLMESARTAN MEDOXOMIL [Concomitant]
     Dosage: 10 MG, UNK
  8. PRAVASTATIN HEXAL [Concomitant]
     Dosage: 20 MG, UNK
  9. BERODUAL N [Concomitant]
     Dosage: UNK, AS NEEDED

REACTIONS (5)
  - DECREASED APPETITE [None]
  - FLUID INTAKE REDUCED [None]
  - RENAL FAILURE [None]
  - RENAL FUNCTION TEST ABNORMAL [None]
  - WEIGHT DECREASED [None]
